FAERS Safety Report 8314533 (Version 9)
Quarter: 2012Q4

REPORT INFORMATION
  Report Type: 
  Country: US (occurrence: US)
  Receive Date: 20111228
  Receipt Date: 20121228
  Transmission Date: 20130627
  Serious: Yes (Hospitalization, Other)
  Sender: FDA-Public Use
  Company Number: US-ASTRAZENECA-2011SE77049

PATIENT
  Age: 78 Year
  Sex: Female
  Weight: 49 kg

DRUGS (13)
  1. NEXIUM [Suspect]
     Indication: GASTROOESOPHAGEAL REFLUX DISEASE
     Route: 048
  2. PULMICORT FLEXHALER [Suspect]
     Indication: ASTHMA
     Dosage: 180MCG 2 PUFFS THREE TIMES A DAY
     Route: 055
  3. 17 TO 20 MEDICATION [Concomitant]
  4. FORADIL [Concomitant]
  5. SPIRIVA [Concomitant]
  6. CO24 [Concomitant]
  7. VERAMYST NOSE SPRAY [Concomitant]
  8. CELEBREX [Concomitant]
  9. PREMPRO [Concomitant]
  10. PREDNISONE [Concomitant]
  11. ULTRASAN [Concomitant]
  12. TYLENOL [Concomitant]
  13. LIDOCAINE PATCHES [Concomitant]
     Indication: BACK DISORDER

REACTIONS (21)
  - Suicidal ideation [Unknown]
  - Pneumonia [Unknown]
  - Gastrooesophageal reflux disease [Unknown]
  - General physical condition abnormal [Unknown]
  - Pain [Unknown]
  - Osteoarthritis [Unknown]
  - Gastric disorder [Unknown]
  - Mobility decreased [Unknown]
  - Asthma [Unknown]
  - Intervertebral disc protrusion [Unknown]
  - Fatigue [Unknown]
  - Food allergy [Unknown]
  - Spinal column stenosis [Unknown]
  - Impaired driving ability [Unknown]
  - Activities of daily living impaired [Unknown]
  - Drug hypersensitivity [Unknown]
  - Abscess limb [Unknown]
  - Malaise [Unknown]
  - Chronic obstructive pulmonary disease [Unknown]
  - Off label use [Unknown]
  - Drug dose omission [Unknown]
